FAERS Safety Report 6231506-0 (Version None)
Quarter: 2009Q2

REPORT INFORMATION
  Report Type: 
  Country: None (occurrence: None)
  Receive Date: 20090616
  Receipt Date: 20090615
  Transmission Date: 20091009
  Serious: Yes (Hospitalization)
  Sender: FDA-Public Use
  Company Number: B0571451A

PATIENT
  Age: 40 Year
  Sex: Female

DRUGS (6)
  1. ABACAVIR [Suspect]
     Indication: HIV INFECTION
  2. LAMIVUDINE [Suspect]
     Indication: HIV INFECTION
  3. ZIDOVUDINE [Suspect]
     Indication: HIV INFECTION
  4. LOPINAVIR [Suspect]
     Indication: HIV INFECTION
  5. RITONAVIR [Suspect]
     Indication: HIV INFECTION
  6. ENFUVIRTIDE [Suspect]
     Indication: HIV INFECTION

REACTIONS (11)
  - ACUTE RESPIRATORY FAILURE [None]
  - DRUG HYPERSENSITIVITY [None]
  - FUNGAL OESOPHAGITIS [None]
  - HYPOTENSION [None]
  - IMMUNODEFICIENCY [None]
  - LACTIC ACIDOSIS [None]
  - PRURITUS [None]
  - RASH [None]
  - RENAL FAILURE [None]
  - RHABDOMYOLYSIS [None]
  - TRANSAMINASES INCREASED [None]
